FAERS Safety Report 5450147-6 (Version None)
Quarter: 2007Q3

REPORT INFORMATION
  Report Type: 
  Country: None (occurrence: None)
  Receive Date: 20070912
  Receipt Date: 20070910
  Transmission Date: 20080115
  Serious: Yes (Life-Threatening, Disabling)
  Sender: FDA-Public Use
  Company Number: B0484453A

PATIENT
  Age: 68 Year
  Sex: Male
  Weight: 40 kg

DRUGS (15)
  1. PAXIL [Suspect]
     Indication: DEPRESSION
     Route: 048
     Dates: start: 20050101
  2. PREDNISOLONE [Concomitant]
     Indication: MICROSCOPIC POLYANGIITIS
     Route: 048
  3. FAMOTIDINE [Concomitant]
     Indication: DRUG USE FOR UNKNOWN INDICATION
  4. BAKTAR [Concomitant]
     Indication: PROPHYLAXIS
     Dosage: 1G PER DAY
     Route: 048
  5. LIPITOR [Concomitant]
     Dosage: 10MG PER DAY
     Route: 048
  6. RABEPRAZOLE SODIUM [Concomitant]
     Indication: PROPHYLAXIS
     Dosage: 10MG PER DAY
     Route: 048
  7. ZOLPIDEM [Concomitant]
     Indication: INSOMNIA
     Dosage: 10MG PER DAY
     Route: 048
  8. RIZE [Concomitant]
     Indication: DEPRESSION
     Dosage: 10MG PER DAY
     Route: 048
     Dates: start: 20070819
  9. FOSAMAC [Concomitant]
     Indication: OSTEOPOROSIS
     Route: 048
  10. HARNAL [Concomitant]
     Indication: BENIGN PROSTATIC HYPERPLASIA
     Dosage: .2MG PER DAY
     Route: 048
  11. CALBLOCK [Concomitant]
     Indication: HYPERTENSION
     Dosage: 8MG PER DAY
     Route: 048
  12. GASMOTIN [Concomitant]
     Indication: STOMACH DISCOMFORT
     Dosage: 15MG PER DAY
     Route: 048
     Dates: start: 20070819
  13. DALACIN [Concomitant]
     Indication: TOXOPLASMOSIS
     Dosage: 600MG PER DAY
     Route: 042
     Dates: start: 20070803
  14. KIDMIN [Concomitant]
     Indication: TOXOPLASMOSIS
     Dosage: 200MG PER DAY
     Route: 042
     Dates: start: 20070803
  15. VITAMEDIN [Concomitant]
     Indication: TOXOPLASMOSIS
     Route: 042
     Dates: start: 20070803

REACTIONS (6)
  - ASPARTATE AMINOTRANSFERASE INCREASED [None]
  - BLOOD CREATININE INCREASED [None]
  - HAEMATOCRIT DECREASED [None]
  - HAEMOGLOBIN DECREASED [None]
  - HYPONATRAEMIA [None]
  - WHITE BLOOD CELL COUNT INCREASED [None]
